FAERS Safety Report 18170340 (Version 1)
Quarter: 2020Q3

REPORT INFORMATION
  Report Type: Spontaneous
  Country: DE (occurrence: DE)
  Receive Date: 20200819
  Receipt Date: 20200819
  Transmission Date: 20201103
  Serious: Yes (Hospitalization)
  Sender: FDA-Public Use
  Company Number: DE-MYLANLABS-2020M1071240

PATIENT
  Age: 79 Year
  Sex: Female
  Weight: 80.9 kg

DRUGS (7)
  1. INSULIN GLULISINE [Concomitant]
     Active Substance: INSULIN GLULISINE
     Dosage: NACH SCHEMA, AMPULLEN
     Route: 058
  2. ROSUVASTATIN. [Concomitant]
     Active Substance: ROSUVASTATIN
     Dosage: 5 MG, 0?0?1?0, TABLETTEN  5 MG, 0?0?1?0, TABLETTEN  5 MG, 0?0?1?0, TABLETTEN
     Route: 048
  3. METAMIZOL                          /06276701/ [Concomitant]
     Active Substance: METAMIZOLE
     Dosage: 500 MG, 4X, TABLETTEN
  4. TORASEMIDE [Suspect]
     Active Substance: TORSEMIDE
     Indication: PRODUCT USED FOR UNKNOWN INDICATION
     Dosage: 10 MG, 1?0?0?0, TABLETTEN
     Route: 048
  5. ACETYLSALICYLIC ACID [Concomitant]
     Active Substance: ASPIRIN
     Indication: PRODUCT USED FOR UNKNOWN INDICATION
     Dosage: 100 MG, 1?0?0?0, TABLETTEN
     Route: 048
  6. COLECALCIFEROL [Concomitant]
     Active Substance: CHOLECALCIFEROL
     Dosage: UNK UNK, QD,1000 IE, 1?0?0?0, TABLETTEN
     Route: 048
  7. INSULIN GLARGINE [Concomitant]
     Active Substance: INSULIN GLARGINE
     Dosage: UNK, QD,24 IE, 0?0?0?1, AMPULLEN
     Route: 058

REACTIONS (5)
  - Condition aggravated [Unknown]
  - Restlessness [Unknown]
  - Confusional state [Unknown]
  - General physical health deterioration [Unknown]
  - Disorientation [Unknown]
